FAERS Safety Report 9329579 (Version 1)
Quarter: 2013Q2

REPORT INFORMATION
  Report Type: Spontaneous
  Country: US (occurrence: US)
  Receive Date: 20130604
  Receipt Date: 20130604
  Transmission Date: 20140414
  Serious: No
  Sender: FDA-Public Use
  Company Number: US-SANOFI-AVENTIS-2012SA088560

PATIENT
  Age: 50 Year
  Sex: Female

DRUGS (4)
  1. SOLOSTAR [Suspect]
     Indication: TYPE 2 DIABETES MELLITUS
     Dates: start: 20120928
  2. LANTUS SOLOSTAR [Suspect]
     Indication: TYPE 2 DIABETES MELLITUS
     Dosage: DOSE:30 UNIT(S)
     Route: 058
     Dates: start: 2012
  3. GLYBURIDE [Concomitant]
     Dosage: 5, TWO PILLS TWICE A DAY
  4. METFORMIN [Concomitant]
     Dosage: 500, TWO PILLS TWICE A DAY

REACTIONS (1)
  - Injury associated with device [Unknown]
